FAERS Safety Report 17682382 (Version 1)
Quarter: 2020Q2

REPORT INFORMATION
  Report Type: Spontaneous
  Country: US (occurrence: US)
  Receive Date: 20200418
  Receipt Date: 20200418
  Transmission Date: 20200714
  Serious: No
  Sender: FDA-Public Use
  Company Number: US-ASTRAZENECA-2020SE49784

PATIENT
  Sex: Female

DRUGS (1)
  1. BUDESONIDE AND FORMOTEROL AEROSOL [Suspect]
     Active Substance: BUDESONIDE\FORMOTEROL FUMARATE DIHYDRATE
     Dosage: 80 MCG/4.5 MCG,UNKNOWN UNKNOWN
     Route: 055

REACTIONS (4)
  - Malaise [Unknown]
  - Dyspnoea [Unknown]
  - Intentional device misuse [Unknown]
  - Wrong technique in product usage process [Unknown]
